FAERS Safety Report 10713516 (Version 2)
Quarter: 2015Q1

REPORT INFORMATION
  Report Type: Report from Study
  Country: US (occurrence: US)
  Receive Date: 20150115
  Receipt Date: 20150130
  Transmission Date: 20150721
  Serious: Yes (Life-Threatening, Hospitalization)
  Sender: FDA-Public Use
  Company Number: US-SA-2015SA002523

PATIENT
  Age: 46 Year
  Sex: Female
  Weight: 89.9 kg

DRUGS (7)
  1. ALEMTUZUMAB [Suspect]
     Active Substance: ALEMTUZUMAB
     Indication: MULTIPLE SCLEROSIS
     Route: 065
  2. MILK OF MAGNESIA [Concomitant]
     Active Substance: MAGNESIUM HYDROXIDE
  3. SURFAK [Concomitant]
     Route: 048
  4. ATIVAN [Concomitant]
     Active Substance: LORAZEPAM
     Route: 048
  5. MORPHINE [Concomitant]
     Active Substance: MORPHINE
  6. ZOFRAN [Concomitant]
     Active Substance: ONDANSETRON HYDROCHLORIDE
  7. MIRALAX [Concomitant]
     Active Substance: POLYETHYLENE GLYCOL 3350
     Route: 048

REACTIONS (3)
  - Iliac vein occlusion [Not Recovered/Not Resolved]
  - Factor V Leiden mutation [Not Recovered/Not Resolved]
  - Deep vein thrombosis [Not Recovered/Not Resolved]

NARRATIVE: CASE EVENT DATE: 20150106
